FAERS Safety Report 8726564 (Version 3)
Quarter: 2012Q4

REPORT INFORMATION
  Report Type: 
  Country: FR (occurrence: FR)
  Receive Date: 20120816
  Receipt Date: 20121206
  Transmission Date: 20130627
  Serious: Yes (Other)
  Sender: FDA-Public Use
  Company Number: PHHY2012FR070714

PATIENT
  Age: 56 Year
  Sex: Male

DRUGS (2)
  1. LEPONEX [Suspect]
     Indication: SCHIZOPHRENIA
     Dosage: UNK
     Route: 048
  2. LEPONEX [Suspect]
     Dosage: 400 mg, daily
     Route: 048
     Dates: start: 20120727

REACTIONS (4)
  - Polycythaemia [Unknown]
  - Malaise [Unknown]
  - Fatigue [Unknown]
  - Thrombocytosis [Recovered/Resolved]
